FAERS Safety Report 25969486 (Version 1)
Quarter: 2025Q4

REPORT INFORMATION
  Report Type: Spontaneous
  Country: US (occurrence: None)
  Receive Date: 20251028
  Receipt Date: 20251028
  Transmission Date: 20260117
  Serious: Yes (Disabling)
  Sender: FDA-CTU
  Company Number: None

PATIENT
  Age: 24 Year
  Sex: Female
  Weight: 60.75 kg

DRUGS (1)
  1. CELEBREX [Suspect]
     Active Substance: CELECOXIB

REACTIONS (4)
  - Drug ineffective [None]
  - Withdrawal syndrome [None]
  - Pain [None]
  - Product communication issue [None]

NARRATIVE: CASE EVENT DATE: 20251001
